FAERS Safety Report 21372185 (Version 4)
Quarter: 2022Q4

REPORT INFORMATION
  Report Type: Spontaneous
  Country: JP (occurrence: JP)
  Receive Date: 20220923
  Receipt Date: 20221128
  Transmission Date: 20230112
  Serious: Yes (Other)
  Sender: FDA-Public Use
  Company Number: JP-ABBVIE-22K-087-4536181-00

PATIENT
  Age: 23 Year
  Sex: Female
  Weight: 50 kg

DRUGS (10)
  1. RINVOQ [Suspect]
     Active Substance: UPADACITINIB
     Indication: Dermatitis atopic
     Dosage: FORM STRENGTH: 30 MILLIGRAM
     Route: 048
     Dates: start: 20220826, end: 20220907
  2. RINVOQ [Suspect]
     Active Substance: UPADACITINIB
     Indication: Dermatitis atopic
     Dosage: FORM STRENGTH: 15 MILLIGRAM
     Route: 048
     Dates: start: 20220408, end: 20220825
  3. RINVOQ [Suspect]
     Active Substance: UPADACITINIB
     Indication: Dermatitis atopic
     Dosage: FORM STRENGTH: 15 MILLIGRAM
     Route: 048
     Dates: start: 20220908
  4. BETAMETHASONE BUTYRATE PROPIONATE [Concomitant]
     Active Substance: BETAMETHASONE BUTYRATE PROPIONATE
     Indication: Dermatitis atopic
     Route: 003
  5. DELGOCITINIB [Concomitant]
     Active Substance: DELGOCITINIB
     Indication: Dermatitis atopic
     Route: 003
  6. WHITE PETROLATUM [Concomitant]
     Active Substance: PETROLATUM
     Indication: Dermatitis atopic
     Route: 003
  7. GUAIAZULENE [Suspect]
     Active Substance: GUAIAZULENE
     Indication: Product used for unknown indication
     Route: 061
  8. LOCOID [Suspect]
     Active Substance: HYDROCORTISONE BUTYRATE
     Indication: Dermatitis atopic
     Route: 061
     Dates: start: 20220908
  9. MINOCYCLINE HYDROCHLORIDE [Suspect]
     Active Substance: MINOCYCLINE HYDROCHLORIDE
     Indication: Product used for unknown indication
     Dosage: 100 MILLIGRAM
     Dates: start: 20220908, end: 20220914
  10. VALACYCLOVIR HYDROCHLORIDE [Suspect]
     Active Substance: VALACYCLOVIR HYDROCHLORIDE
     Indication: Product used for unknown indication
     Dosage: 3000 MILLIGRAM
     Dates: start: 20220908, end: 20220914

REACTIONS (11)
  - Erythema multiforme [Recovering/Resolving]
  - Dermatitis atopic [Unknown]
  - Erythema [Recovering/Resolving]
  - Dermatitis atopic [Unknown]
  - Lichenification [Unknown]
  - Skin erosion [Recovering/Resolving]
  - Blister [Recovering/Resolving]
  - Pyrexia [Unknown]
  - Pustule [Recovering/Resolving]
  - Scab [Unknown]
  - Pustule [Recovering/Resolving]

NARRATIVE: CASE EVENT DATE: 20220101
